FAERS Safety Report 25078222 (Version 1)
Quarter: 2025Q1

REPORT INFORMATION
  Report Type: Spontaneous
  Country: GB (occurrence: GB)
  Receive Date: 20250314
  Receipt Date: 20250314
  Transmission Date: 20250409
  Serious: Yes (Disabling, Other)
  Sender: AMERICAN REGENT
  Company Number: GB-AMERICAN REGENT INC-2025001052

PATIENT
  Age: 47 Year
  Sex: Female

DRUGS (1)
  1. FERINJECT [Suspect]
     Active Substance: FERRIC CARBOXYMALTOSE
     Indication: Product used for unknown indication
     Route: 065
     Dates: start: 20250130

REACTIONS (12)
  - Medication error [Unknown]
  - Hypophosphataemia [Not Recovered/Not Resolved]
  - Lethargy [Unknown]
  - Osteoporosis [Unknown]
  - Sitting disability [Unknown]
  - Quality of life decreased [Unknown]
  - Housebound [Unknown]
  - Dysstasia [Unknown]
  - Bone pain [Unknown]
  - Muscular weakness [Unknown]
  - Palpitations [Unknown]
  - Dyspnoea [Unknown]

NARRATIVE: CASE EVENT DATE: 20250101
